FAERS Safety Report 18893594 (Version 1)
Quarter: 2021Q1

REPORT INFORMATION
  Report Type: Spontaneous
  Country: US (occurrence: US)
  Receive Date: 20210215
  Receipt Date: 20210215
  Transmission Date: 20210420
  Serious: Yes (Other)
  Sender: FDA-Public Use
  Company Number: US-SA-2021SA041725

PATIENT
  Age: 66 Year
  Sex: Male

DRUGS (11)
  1. TAMSULOSIN HYDROCHLORIDE. [Suspect]
     Active Substance: TAMSULOSIN HYDROCHLORIDE
     Dosage: UNK
     Route: 065
     Dates: end: 202101
  2. MAGNESIUM [Concomitant]
     Active Substance: MAGNESIUM
     Indication: SUPPLEMENTATION THERAPY
  3. CLONAZEPAM. [Concomitant]
     Active Substance: CLONAZEPAM
  4. BUPROPION HYDROCHLORIDE. [Concomitant]
     Active Substance: BUPROPION HYDROCHLORIDE
  5. ALCOHOL. [Concomitant]
     Active Substance: ALCOHOL
  6. VITAMIN B CO [Concomitant]
  7. CARBIDOPA/LEVODOPA [Concomitant]
     Active Substance: CARBIDOPA\LEVODOPA
  8. GOCOVRI [Suspect]
     Active Substance: AMANTADINE
     Indication: DYSKINESIA
     Dosage: 137 MG, HS
     Dates: start: 20201218
  9. GOCOVRI [Suspect]
     Active Substance: AMANTADINE
     Dosage: 274 MG, HS
     Dates: start: 20201225, end: 20210110
  10. GOCOVRI [Suspect]
     Active Substance: AMANTADINE
     Dosage: 137 MG, HS
     Dates: start: 20210111
  11. TAMSULOSIN [Concomitant]
     Active Substance: TAMSULOSIN

REACTIONS (11)
  - Diplopia [Unknown]
  - Burning sensation [Unknown]
  - Conjunctival irritation [Recovered/Resolved]
  - Vision blurred [Recovered/Resolved]
  - Oedema peripheral [Not Recovered/Not Resolved]
  - Hypotension [Recovered/Resolved]
  - Oedema peripheral [Not Recovered/Not Resolved]
  - Dry eye [Recovered/Resolved]
  - Injury corneal [Recovered/Resolved]
  - Dyskinesia [Not Recovered/Not Resolved]
  - Corneal oedema [Recovered/Resolved]

NARRATIVE: CASE EVENT DATE: 20210114
